FAERS Safety Report 8262241 (Version 7)
Quarter: 2012Q4

REPORT INFORMATION
  Report Type: 
  Country: US (occurrence: US)
  Receive Date: 20111123
  Receipt Date: 20121120
  Transmission Date: 20130627
  Serious: Yes (Life-Threatening, Other)
  Sender: FDA-Public Use
  Company Number: US-ASTRAZENECA-2011SE70638

PATIENT
  Age: 33 Year
  Sex: Male
  Weight: 81.6 kg

DRUGS (8)
  1. SEROQUEL [Suspect]
     Indication: MAJOR DEPRESSION
     Route: 048
  2. SEROQUEL [Suspect]
     Indication: DEPRESSION
     Route: 048
  3. SEROQUEL [Suspect]
     Indication: MAJOR DEPRESSION
     Route: 048
     Dates: start: 201109
  4. SEROQUEL [Suspect]
     Indication: DEPRESSION
     Route: 048
     Dates: start: 201109
  5. SEROQUEL [Suspect]
     Indication: MAJOR DEPRESSION
     Route: 048
  6. SEROQUEL [Suspect]
     Indication: DEPRESSION
     Route: 048
  7. PAIN MEDICINE [Concomitant]
  8. REMERON [Concomitant]

REACTIONS (22)
  - Suicide attempt [Unknown]
  - Depression [Unknown]
  - Suicidal behaviour [Unknown]
  - Suicidal ideation [Unknown]
  - General physical health deterioration [Unknown]
  - Insomnia [Unknown]
  - Depression [Unknown]
  - Anger [Unknown]
  - Anhedonia [Unknown]
  - Malaise [Unknown]
  - Poor personal hygiene [Unknown]
  - Weight decreased [Unknown]
  - Anxiety [Unknown]
  - Activities of daily living impaired [Unknown]
  - Social avoidant behaviour [Unknown]
  - Back pain [Unknown]
  - Intervertebral disc disorder [Unknown]
  - Irritability [Unknown]
  - Asthenia [Unknown]
  - Drug dose omission [Unknown]
  - Drug ineffective [Unknown]
  - Off label use [Unknown]
